FAERS Safety Report 4460190-1 (Version None)
Quarter: 2004Q3

REPORT INFORMATION
  Report Type: 
  Country: None (occurrence: None)
  Receive Date: 20040928
  Receipt Date: 20040120
  Transmission Date: 20050211
  Serious: No
  Sender: FDA-Public Use
  Company Number: US-GLAXOSMITHKLINE-A0494249A

PATIENT
  Sex: Male

DRUGS (4)
  1. SEREVENT [Suspect]
     Indication: ASTHMA
     Route: 055
  2. SINGULAIR [Concomitant]
  3. ALLEGRA-D [Concomitant]
  4. ALBUTEROL [Concomitant]

REACTIONS (3)
  - DRUG INEFFECTIVE [None]
  - DYSPNOEA [None]
  - PHARMACEUTICAL PRODUCT COMPLAINT [None]
